FAERS Safety Report 24647423 (Version 1)
Quarter: 2024Q4

REPORT INFORMATION
  Report Type: Report from Study
  Country: EG (occurrence: EG)
  Receive Date: 20241121
  Receipt Date: 20241121
  Transmission Date: 20250114
  Serious: Yes (Other)
  Sender: NOVARTIS
  Company Number: EG-002147023-NVSC2024EG222284

PATIENT
  Sex: Male
  Weight: 109 kg

DRUGS (4)
  1. GILENYA [Suspect]
     Active Substance: FINGOLIMOD HYDROCHLORIDE
     Indication: Multiple sclerosis
     Dosage: 0.5 MG, QD (ONCE DAILY)
     Route: 048
  2. GILENYA [Suspect]
     Active Substance: FINGOLIMOD HYDROCHLORIDE
     Dosage: 0.5 MG, Q48H (1 CAP GILENYA EVERY OTHER DAY)
     Route: 048
  3. ATORVASTATIN CALCIUM [Suspect]
     Active Substance: ATORVASTATIN CALCIUM
     Indication: Blood cholesterol abnormal
     Dosage: 20 MG, BID (TABLET)
     Route: 065
  4. ROSUVASTATIN CALCIUM [Suspect]
     Active Substance: ROSUVASTATIN CALCIUM
     Indication: Blood cholesterol abnormal
     Dosage: 10 MG, QD
     Route: 048

REACTIONS (2)
  - Liver function test increased [Recovering/Resolving]
  - Off label use [Unknown]
